FAERS Safety Report 6130058-3 (Version None)
Quarter: 2009Q1

REPORT INFORMATION
  Report Type: 
  Country: None (occurrence: None)
  Receive Date: 20090324
  Receipt Date: 20090318
  Transmission Date: 20090719
  Serious: Yes (Other)
  Sender: FDA-Public Use
  Company Number: IT-ABBOTT-09P-083-0563203-00

PATIENT
  Age: 34 Year
  Sex: Male

DRUGS (1)
  1. DEPAKOTE [Suspect]
     Indication: EPILEPSY
     Route: 048

REACTIONS (3)
  - AZOOSPERMIA [None]
  - BLOOD GONADOTROPHIN DECREASED [None]
  - BLOOD TESTOSTERONE DECREASED [None]
